FAERS Safety Report 9932977 (Version 1)
Quarter: 2014Q1

REPORT INFORMATION
  Report Type: Spontaneous
  Country: US (occurrence: US)
  Receive Date: 20140228
  Receipt Date: 20140228
  Transmission Date: 20141002
  Serious: No
  Sender: FDA-Public Use
  Company Number: US-ABBVIE-13P-163-1061892-00

PATIENT
  Age: 57 Year
  Sex: Male
  Weight: 95.34 kg

DRUGS (2)
  1. ANDROGEL [Suspect]
     Indication: BLOOD TESTOSTERONE DECREASED
     Dosage: PACKETS
     Route: 061
     Dates: start: 201210, end: 201302
  2. ANDROGEL [Suspect]
     Dosage: PACKETS
     Route: 061
     Dates: start: 201303

REACTIONS (4)
  - Skin irritation [Not Recovered/Not Resolved]
  - Erythema [Not Recovered/Not Resolved]
  - Skin burning sensation [Not Recovered/Not Resolved]
  - Blood testosterone decreased [Unknown]
